FAERS Safety Report 5826652-7 (Version None)
Quarter: 2008Q3

REPORT INFORMATION
  Report Type: 
  Country: None (occurrence: None)
  Receive Date: 20080728
  Receipt Date: 20080728
  Transmission Date: 20090109
  Serious: Yes (Hospitalization, Disabling)
  Sender: FDA-Public Use
  Company Number: None

PATIENT
  Sex: Female
  Weight: 61.6892 kg

DRUGS (7)
  1. FOSAMAX [Suspect]
     Indication: OSTEOPOROSIS
     Dosage: ONE WEEKLY PO, 5+ YEARS
     Route: 048
  2. SINEMET [Concomitant]
  3. EFFEXOR [Concomitant]
  4. NEXIUM [Concomitant]
  5. LIPITOR [Concomitant]
  6. ARICEPT [Concomitant]
  7. BETOPTIC [Concomitant]

REACTIONS (1)
  - PATHOLOGICAL FRACTURE [None]
